FAERS Safety Report 9671897 (Version 1)
Quarter: 2013Q4

REPORT INFORMATION
  Report Type: Spontaneous
  Country: FR (occurrence: FR)
  Receive Date: 20131106
  Receipt Date: 20131106
  Transmission Date: 20140711
  Serious: Yes (Other)
  Sender: FDA-Public Use
  Company Number: FR-ROXANE LABORATORIES, INC.-2013-BI-34048GD

PATIENT
  Age: 75 Year
  Sex: Female

DRUGS (5)
  1. SERTRALINE [Suspect]
     Indication: MAJOR DEPRESSION
     Dosage: 50 MG
  2. SERTRALINE [Suspect]
     Dosage: 100 MG
  3. AMANTADINE [Suspect]
     Indication: PARKINSON^S DISEASE
     Dosage: 200 MG
  4. RASAGILINE [Suspect]
     Indication: PARKINSON^S DISEASE
     Dosage: 1 MG
  5. LEVODOPA/CARBIDOPA/ENTACAPONE [Suspect]
     Indication: PARKINSON^S DISEASE
     Dosage: DOSE: LEVODOPA 200 MG/CARBIDOPA 50 MG/ENTACAPONE 200 MG

REACTIONS (16)
  - Rhabdomyolysis [Unknown]
  - Encephalopathy [Recovered/Resolved]
  - Serotonin syndrome [Recovered/Resolved]
  - Drug interaction [Unknown]
  - Renal failure [Unknown]
  - Dehydration [Unknown]
  - Agitation [Unknown]
  - Delusion [Unknown]
  - Altered state of consciousness [Unknown]
  - Hyperhidrosis [Unknown]
  - Hyperthermia [Unknown]
  - Labile blood pressure [Unknown]
  - Tremor [Unknown]
  - Myoclonus [Unknown]
  - Muscle rigidity [Unknown]
  - Hyperreflexia [Unknown]
